FAERS Safety Report 7985266-3 (Version None)
Quarter: 2011Q4

REPORT INFORMATION
  Report Type: 
  Country: None (occurrence: None)
  Receive Date: 20111216
  Receipt Date: 20111209
  Transmission Date: 20120403
  Serious: Yes (Hospitalization, Other)
  Sender: FDA-Public Use
  Company Number: US-JNJFOC-20111205387

PATIENT
  Sex: Female
  Weight: 90.72 kg

DRUGS (6)
  1. DURAGESIC-100 [Suspect]
     Indication: PAIN
     Route: 062
  2. DURAGESIC-100 [Suspect]
     Route: 062
     Dates: start: 20050101, end: 20070101
  3. DURAGESIC-100 [Suspect]
     Dosage: 25 UG/HR+12.5 UG/HR
     Route: 062
     Dates: start: 20070101, end: 20110101
  4. DURAGESIC-100 [Suspect]
     Route: 062
  5. FENTANYL [Suspect]
     Indication: PAIN
     Route: 062
     Dates: start: 20110101
  6. DURAGESIC-100 [Suspect]
     Route: 062
     Dates: start: 20110101, end: 20110101

REACTIONS (8)
  - SPINAL DISORDER [None]
  - SEPSIS [None]
  - NEOPLASM MALIGNANT [None]
  - SHORT-BOWEL SYNDROME [None]
  - PRODUCT QUALITY ISSUE [None]
  - SOMNOLENCE [None]
  - VISUAL ACUITY REDUCED [None]
  - PHYSIOTHERAPY [None]
